FAERS Safety Report 18427808 (Version 1)
Quarter: 2020Q4

REPORT INFORMATION
  Report Type: Spontaneous
  Country: TW (occurrence: TW)
  Receive Date: 20201026
  Receipt Date: 20201026
  Transmission Date: 20210114
  Serious: Yes (Other)
  Sender: FDA-Public Use
  Company Number: TW-ASTRAZENECA-2020SF38003

PATIENT
  Sex: Male

DRUGS (3)
  1. GLUTATHIONE [Concomitant]
     Active Substance: GLUTATHIONE
     Indication: LIVER DISORDER
     Route: 041
     Dates: start: 20200928, end: 20201004
  2. IRESSA [Suspect]
     Active Substance: GEFITINIB
     Route: 048
     Dates: end: 20201011
  3. COMPOUND DIISOPROPYLAMINE DICHLOROACETATE [Concomitant]
     Active Substance: DIISOPROPYLAMMONIUM DICHLOROACETATE
     Indication: LIVER DISORDER
     Route: 041
     Dates: start: 20200928, end: 20201004

REACTIONS (5)
  - White blood cell count increased [Unknown]
  - Pericardial effusion [Unknown]
  - Metastases to heart [Unknown]
  - Sinus tachycardia [Unknown]
  - Pleural effusion [Unknown]

NARRATIVE: CASE EVENT DATE: 20200927
